FAERS Safety Report 4733141-X (Version None)
Quarter: 2005Q3

REPORT INFORMATION
  Report Type: 
  Country: None (occurrence: None)
  Receive Date: 20050803
  Receipt Date: 20050520
  Transmission Date: 20060218
  Serious: Yes (Disabling, Other)
  Sender: FDA-Public Use
  Company Number: PHNR2005AU00898

PATIENT
  Age: 51 Year
  Sex: Female

DRUGS (4)
  1. ZOMETA [Suspect]
     Indication: METASTASES TO BONE
     Dates: start: 20050215
  2. AREDIA [Suspect]
     Dosage: UNK, UNK
     Dates: start: 20030501, end: 20050101
  3. ARIMIDEX [Concomitant]
     Indication: BREAST CANCER
     Dates: start: 20050301
  4. XELODA [Concomitant]
     Dates: start: 20040601, end: 20050201

REACTIONS (5)
  - ACTINOMYCOSIS [None]
  - BONE INFECTION [None]
  - FISTULA [None]
  - OSTEONECROSIS [None]
  - TOOTH EXTRACTION [None]
